FAERS Safety Report 16194704 (Version 3)
Quarter: 2019Q2

REPORT INFORMATION
  Report Type: Spontaneous
  Country: TR (occurrence: TR)
  Receive Date: 20190414
  Receipt Date: 20190414
  Transmission Date: 20190711
  Serious: Yes (Other)
  Sender: FDA-Public Use
  Company Number: PHHY2019TR085411

PATIENT
  Age: 62 Year
  Sex: Female

DRUGS (3)
  1. PREDNISOLONE. [Suspect]
     Active Substance: PREDNISOLONE
     Indication: RHEUMATOID VASCULITIS
     Dosage: 40 MG, QD
     Route: 048
  2. METHYLPREDNISOLONE. [Suspect]
     Active Substance: METHYLPREDNISOLONE
     Indication: RHEUMATOID VASCULITIS
     Dosage: 1 G, QD
     Route: 042
  3. METHOTREXATE. [Suspect]
     Active Substance: METHOTREXATE
     Indication: RHEUMATOID VASCULITIS
     Dosage: 15 MG, QW
     Route: 058

REACTIONS (6)
  - Cough [Unknown]
  - Myocardial infarction [Unknown]
  - Respiratory disorder [Unknown]
  - Pyrexia [Unknown]
  - Product use in unapproved indication [Unknown]
  - Therapy non-responder [Unknown]
